FAERS Safety Report 19220616 (Version 1)
Quarter: 2021Q2

REPORT INFORMATION
  Report Type: Spontaneous
  Country: FR (occurrence: FR)
  Receive Date: 20210505
  Receipt Date: 20210505
  Transmission Date: 20210717
  Serious: Yes (Other)
  Sender: FDA-Public Use
  Company Number: FR-PFIZER INC-2021462665

PATIENT
  Age: 35 Year
  Sex: Female
  Weight: 90 kg

DRUGS (4)
  1. CELEBREX [Suspect]
     Active Substance: CELECOXIB
     Indication: ANKYLOSING SPONDYLITIS
     Dosage: UNK
     Route: 048
  2. COSENTYX [Suspect]
     Active Substance: SECUKINUMAB
     Indication: ANKYLOSING SPONDYLITIS
     Dosage: 1 DF, EVERY 3 MONTHS
     Route: 058
     Dates: start: 20190205, end: 20191205
  3. LAMALINE (ACETAMINOPHEN\CAFFEINE\OPIUM) [Suspect]
     Active Substance: ACETAMINOPHEN\CAFFEINE\OPIUM
     Indication: ANKYLOSING SPONDYLITIS
     Dosage: UNK
     Route: 048
  4. HUMIRA [Suspect]
     Active Substance: ADALIMUMAB
     Indication: ANKYLOSING SPONDYLITIS
     Dosage: FREQ: 2 WK
     Route: 058
     Dates: start: 20181119, end: 20190202

REACTIONS (1)
  - Triple negative breast cancer [Recovered/Resolved with Sequelae]

NARRATIVE: CASE EVENT DATE: 201905
